FAERS Safety Report 5056882-6 (Version None)
Quarter: 2006Q3

REPORT INFORMATION
  Report Type: 
  Country: None (occurrence: None)
  Receive Date: 20060721
  Receipt Date: 20060710
  Transmission Date: 20061208
  Serious: Yes (Hospitalization, Other)
  Sender: FDA-Public Use
  Company Number: JP-JNJFOC-20060504076

PATIENT
  Age: 4 Decade
  Sex: Female

DRUGS (1)
  1. ITRACONAZOLE [Suspect]
     Indication: NAIL TINEA
     Route: 048

REACTIONS (3)
  - ACUTE LEUKAEMIA [None]
  - PLATELET COUNT DECREASED [None]
  - WHITE BLOOD CELL COUNT INCREASED [None]
